FAERS Safety Report 10049629 (Version 1)
Quarter: 2014Q2

REPORT INFORMATION
  Report Type: Report from Study
  Country: MX (occurrence: MX)
  Receive Date: 20140401
  Receipt Date: 20140401
  Transmission Date: 20141212
  Serious: Yes (Death, Other)
  Sender: FDA-Public Use
  Company Number: PHHY2014MX038342

PATIENT
  Sex: Female

DRUGS (1)
  1. EXFORGE HCT [Suspect]
     Dosage: 1 DF (160/5/12.5), UNK
     Route: 048
     Dates: start: 201106, end: 201311

REACTIONS (3)
  - Cardiac disorder [Fatal]
  - Pain [Fatal]
  - Malaise [Fatal]
